FAERS Safety Report 16247094 (Version 1)
Quarter: 2019Q2

REPORT INFORMATION
  Report Type: Other
  Country: ES (occurrence: ES)
  Receive Date: 20190427
  Receipt Date: 20190427
  Transmission Date: 20190711
  Serious: Yes (Life-Threatening, Hospitalization, Other)
  Sender: FDA-Public Use
  Company Number: ES-APOTEX-2019AP012506

PATIENT
  Age: 35 Year
  Sex: Male

DRUGS (5)
  1. LEVOMEPROMAZINE MALEATE [Concomitant]
     Active Substance: LEVOMEPROMAZINE MALEATE
     Indication: WITHDRAWAL SYNDROME
     Dosage: 25 MG, QD
     Route: 030
     Dates: start: 20181224, end: 20181228
  2. METADONA                           /00068901/ [Suspect]
     Active Substance: METHADONE HYDROCHLORIDE
     Indication: WITHDRAWAL SYNDROME
     Dosage: 15 MG, QD
     Route: 048
     Dates: start: 20181225, end: 20181228
  3. METADONA /00068901/ [Concomitant]
     Active Substance: METHADONE HYDROCHLORIDE
     Indication: WITHDRAWAL SYNDROME
     Dosage: 10 MG, ONE TOTAL
     Route: 048
     Dates: start: 20181224, end: 20181224
  4. TRAMADOL. [Suspect]
     Active Substance: TRAMADOL
     Indication: WITHDRAWAL SYNDROME
     Dosage: 50 MG, QD
     Route: 048
     Dates: start: 20181225, end: 20181228
  5. TRAMADOL HYDROCHLORIDE. [Concomitant]
     Active Substance: TRAMADOL HYDROCHLORIDE
     Indication: WITHDRAWAL SYNDROME
     Dosage: 150 MG, ONE TOTAL
     Route: 048
     Dates: start: 20181224, end: 20181224

REACTIONS (2)
  - Depressed level of consciousness [Recovered/Resolved]
  - Respiratory depression [Recovered/Resolved]

NARRATIVE: CASE EVENT DATE: 20181228
